FAERS Safety Report 25923071 (Version 3)
Quarter: 2025Q4

REPORT INFORMATION
  Report Type: Report from Study
  Country: US (occurrence: US)
  Receive Date: 20251015
  Receipt Date: 20251021
  Transmission Date: 20260118
  Serious: Yes (Hospitalization)
  Sender: ABBVIE
  Company Number: US-ABBVIE-6501192

PATIENT
  Age: 66 Year
  Sex: Female
  Weight: 54.4 kg

DRUGS (1)
  1. VYALEV [Suspect]
     Active Substance: FOSCARBIDOPA\FOSLEVODOPA
     Indication: Parkinson^s disease
     Route: 058
     Dates: start: 20250911

REACTIONS (15)
  - Infusion site infection [Not Recovered/Not Resolved]
  - Abdominal rigidity [Recovering/Resolving]
  - Abdominal distension [Unknown]
  - Catheter site irritation [Recovering/Resolving]
  - Subcutaneous drug absorption impaired [Not Recovered/Not Resolved]
  - Tenderness [Not Recovered/Not Resolved]
  - Administration site hypertrophy [Recovering/Resolving]
  - Infusion site cellulitis [Recovering/Resolving]
  - Feeling abnormal [Recovering/Resolving]
  - White blood cell count increased [Unknown]
  - Catheter site related reaction [Recovering/Resolving]
  - Malaise [Recovering/Resolving]
  - Catheter site swelling [Not Recovered/Not Resolved]
  - Constipation [Not Recovered/Not Resolved]
  - Catheter site haemorrhage [Unknown]

NARRATIVE: CASE EVENT DATE: 20250101
